FAERS Safety Report 7700665-2 (Version None)
Quarter: 2011Q3

REPORT INFORMATION
  Report Type: 
  Country: None (occurrence: None)
  Receive Date: 20110822
  Receipt Date: 20110822
  Transmission Date: 20111222
  Serious: Yes (Hospitalization)
  Sender: FDA-Public Use
  Company Number: None

PATIENT
  Age: 58 Year
  Sex: Female
  Weight: 52.163 kg

DRUGS (1)
  1. AMBIEN GENERIC [Suspect]
     Indication: INSOMNIA
     Dosage: 1
     Dates: start: 20110101, end: 20110718

REACTIONS (13)
  - HEAD INJURY [None]
  - ANGER [None]
  - ROAD TRAFFIC ACCIDENT [None]
  - DIPLOPIA [None]
  - AMNESIA [None]
  - TEMPOROMANDIBULAR JOINT SYNDROME [None]
  - ABNORMAL BEHAVIOUR [None]
  - RIB FRACTURE [None]
  - BALANCE DISORDER [None]
  - ECONOMIC PROBLEM [None]
  - LOSS OF CONSCIOUSNESS [None]
  - HEADACHE [None]
  - FEAR [None]
